FAERS Safety Report 25656385 (Version 1)
Quarter: 2025Q3

REPORT INFORMATION
  Report Type: Spontaneous
  Country: KR (occurrence: KR)
  Receive Date: 20250807
  Receipt Date: 20250807
  Transmission Date: 20251020
  Serious: Yes (Life-Threatening)
  Sender: ORGANON
  Company Number: KR-ORGANON-O2508KOR000556

PATIENT
  Sex: Female

DRUGS (5)
  1. SINGULAIR [Suspect]
     Active Substance: MONTELUKAST SODIUM
     Indication: Oropharyngeal pain
     Dosage: 1 DOSAGE FORM, QD
     Route: 048
     Dates: start: 20230330, end: 20230330
  2. IBUPROFEN [Suspect]
     Active Substance: IBUPROFEN
     Indication: Oropharyngeal pain
     Dosage: 1 DOSAGE FORM, QD
     Route: 048
     Dates: start: 20230330, end: 20230330
  3. LEVODROPROPIZINE [Suspect]
     Active Substance: LEVODROPROPIZINE
     Indication: Oropharyngeal pain
     Dosage: 1 DOSAGE FORM, QD
     Route: 048
     Dates: start: 20230330, end: 20230330
  4. PSEUDOEPHEDRINE HYDROCHLORIDE [Suspect]
     Active Substance: PSEUDOEPHEDRINE HYDROCHLORIDE
     Indication: Oropharyngeal pain
     Dosage: 1 DOSAGE FORM, QD
     Route: 048
     Dates: start: 20230330, end: 20230330
  5. CEFPODOXIME PROXETIL [Suspect]
     Active Substance: CEFPODOXIME PROXETIL
     Indication: Oropharyngeal pain
     Dosage: 1 DOSAGE FORM, QD
     Route: 048
     Dates: start: 20230330, end: 20230330

REACTIONS (1)
  - Anaphylactic reaction [Recovered/Resolved]

NARRATIVE: CASE EVENT DATE: 20230330
